FAERS Safety Report 10480290 (Version 1)
Quarter: 2014Q3

REPORT INFORMATION
  Report Type: Report from Study
  Country: DE (occurrence: DE)
  Receive Date: 20140929
  Receipt Date: 20140929
  Transmission Date: 20150326
  Serious: Yes (Hospitalization)
  Sender: FDA-Public Use
  Company Number: DE-009507513-1409DEU010896

PATIENT
  Age: 48 Year
  Sex: Male

DRUGS (3)
  1. DEXTROMETHORPHAN [Concomitant]
     Active Substance: DEXTROMETHORPHAN
     Indication: COUGH
     Dosage: FREQUENCY OCCASIONALLY, TOTAL DAILY DOSE{30MG
     Route: 048
     Dates: start: 20140709, end: 20140919
  2. PEMBROLIZUMAB. [Suspect]
     Active Substance: PEMBROLIZUMAB
     Indication: MALIGNANT MELANOMA
     Dosage: STRENGTH 250MG, Q3W, TOTAL DAILY DOSE 250MG
     Route: 042
     Dates: start: 20140811, end: 20140904
  3. IBUFLAM [Concomitant]
     Active Substance: IBUPROFEN
     Indication: INFLUENZA LIKE ILLNESS
     Dosage: 800 MG, QD
     Route: 048
     Dates: start: 20140911, end: 20140919

REACTIONS (2)
  - Rhabdomyolysis [Unknown]
  - Liver disorder [Unknown]

NARRATIVE: CASE EVENT DATE: 20140915
